FAERS Safety Report 9220478 (Version 1)
Quarter: 2013Q2

REPORT INFORMATION
  Report Type: Spontaneous
  Country: DK (occurrence: DK)
  Receive Date: 20130409
  Receipt Date: 20130409
  Transmission Date: 20140414
  Serious: Yes (Other)
  Sender: FDA-Public Use
  Company Number: DK-ABBOTT-13P-044-1074062-00

PATIENT
  Age: 36 Year
  Sex: Female

DRUGS (3)
  1. KALETRA [Suspect]
     Indication: PRODUCT USED FOR UNKNOWN INDICATION
     Dates: start: 20071029
  2. KALETRA [Suspect]
     Indication: ANTIRETROVIRAL THERAPY
  3. EPIVIR [Suspect]
     Indication: PRODUCT USED FOR UNKNOWN INDICATION
     Dates: start: 20071029

REACTIONS (2)
  - Abortion spontaneous [Unknown]
  - Abortion incomplete [Recovered/Resolved]
